FAERS Safety Report 25468538 (Version 5)
Quarter: 2025Q4

REPORT INFORMATION
  Report Type: Spontaneous
  Country: US (occurrence: US)
  Receive Date: 20250623
  Receipt Date: 20251225
  Transmission Date: 20260117
  Serious: Yes (Other)
  Sender: SANOFI AVENTIS
  Company Number: US-SA-2025SA175548

PATIENT
  Age: 78 Year
  Sex: Female

DRUGS (3)
  1. DUPIXENT [Suspect]
     Active Substance: DUPILUMAB
     Indication: Chronic obstructive pulmonary disease
     Dosage: 600 MG, 1X
     Route: 058
     Dates: start: 202504, end: 202504
  2. DUPIXENT [Suspect]
     Active Substance: DUPILUMAB
     Indication: Asthma
     Dosage: 300 MG, QOW
     Route: 058
     Dates: start: 2025
  3. DUPIXENT [Suspect]
     Active Substance: DUPILUMAB
     Dosage: 300MG
     Dates: start: 202504

REACTIONS (10)
  - Pneumonia [Unknown]
  - Productive cough [Unknown]
  - Condition aggravated [Unknown]
  - Drug dose omission by device [Unknown]
  - Secretion discharge [Unknown]
  - Dyspnoea [Unknown]
  - Injection site bruising [Unknown]
  - Dermatitis atopic [Unknown]
  - Extra dose administered [Unknown]
  - Device operational issue [Unknown]

NARRATIVE: CASE EVENT DATE: 20250101
